FAERS Safety Report 4996234-8 (Version None)
Quarter: 2006Q2

REPORT INFORMATION
  Report Type: 
  Country: None (occurrence: None)
  Receive Date: 20060505
  Receipt Date: 20060424
  Transmission Date: 20061013
  Serious: Yes (Hospitalization)
  Sender: FDA-Public Use
  Company Number: BR-2006-009825

PATIENT
  Age: 52 Year
  Sex: Female

DRUGS (4)
  1. BETAFERON (INTERFERON BETA - 1B) INJECTION, 250UG [Suspect]
     Indication: MULTIPLE SCLEROSIS
     Dosage: MIU, EVERY 2D, SUBCUTANEOUS
     Route: 058
     Dates: start: 20020401, end: 20060331
  2. ADALAT [Concomitant]
  3. ZINOPRIL (LISINOPRIL) [Concomitant]
  4. RETEMIC (OXYBUTYNIN) [Concomitant]

REACTIONS (2)
  - BLOOD PRESSURE INCREASED [None]
  - CEREBROVASCULAR ACCIDENT [None]
